FAERS Safety Report 22534189 (Version 1)
Quarter: 2023Q2

REPORT INFORMATION
  Report Type: Spontaneous
  Country: US (occurrence: US)
  Receive Date: 20230608
  Receipt Date: 20230608
  Transmission Date: 20230722
  Serious: No
  Sender: FDA-Public Use
  Company Number: US-GLENMARK PHARMACEUTICALS-2022GMK075166

PATIENT

DRUGS (1)
  1. COLESEVELAM HYDROCHLORIDE [Suspect]
     Active Substance: COLESEVELAM HYDROCHLORIDE
     Indication: Product used for unknown indication
     Dosage: 3 DOSAGE FORM, TID
     Route: 048
     Dates: start: 2019

REACTIONS (1)
  - Inappropriate schedule of product administration [Unknown]

NARRATIVE: CASE EVENT DATE: 20190101
